FAERS Safety Report 8882512 (Version 1)
Quarter: 2012Q4

REPORT INFORMATION
  Report Type: 
  Country: US (occurrence: US)
  Receive Date: 20121102
  Receipt Date: 20121102
  Transmission Date: 20130627
  Serious: No
  Sender: FDA-Public Use
  Company Number: US-TEVA-348045USA

PATIENT
  Sex: Female

DRUGS (1)
  1. TRISENOX [Suspect]
     Route: 042
     Dates: start: 201206

REACTIONS (2)
  - Induration [Recovered/Resolved]
  - Contusion [Not Recovered/Not Resolved]
